FAERS Safety Report 25604441 (Version 1)
Quarter: 2025Q3

REPORT INFORMATION
  Report Type: Spontaneous
  Country: US (occurrence: US)
  Receive Date: 20250725
  Receipt Date: 20250725
  Transmission Date: 20251021
  Serious: Yes (Hospitalization)
  Sender: CSL BEHRING
  Company Number: US-BEH-2025213659

PATIENT
  Age: 10 Year
  Sex: Male

DRUGS (1)
  1. HUMATE-P [Suspect]
     Active Substance: HUMAN COAGULATION FACTOR VIII/VON WILLEBRAND FACTOR COMPLEX
     Indication: Factor VIII deficiency
     Route: 042
     Dates: start: 201510

REACTIONS (2)
  - Dental operation [Unknown]
  - Epistaxis [Unknown]

NARRATIVE: CASE EVENT DATE: 20250101
